FAERS Safety Report 4748739-2 (Version None)
Quarter: 2005Q3

REPORT INFORMATION
  Report Type: 
  Country: None (occurrence: None)
  Receive Date: 20050819
  Receipt Date: 20050812
  Transmission Date: 20060218
  Serious: Yes (Hospitalization)
  Sender: FDA-Public Use
  Company Number: 2005SE04641

PATIENT
  Age: 10260 Day
  Sex: Female
  Weight: 89 kg

DRUGS (2)
  1. QUETIAPINE FUMARATE [Suspect]
     Indication: MENTAL DISORDER
     Route: 048
     Dates: start: 20050301, end: 20050801
  2. HALOPERIDOL [Concomitant]
     Route: 065

REACTIONS (1)
  - SCHIZOAFFECTIVE DISORDER [None]
